FAERS Safety Report 5920456-2 (Version None)
Quarter: 2008Q4

REPORT INFORMATION
  Report Type: 
  Country: None (occurrence: None)
  Receive Date: 20081015
  Receipt Date: 20081015
  Transmission Date: 20090506
  Serious: Yes (Hospitalization)
  Sender: FDA-Public Use
  Company Number: None

PATIENT
  Age: 30 Year
  Sex: Male

DRUGS (2)
  1. SULFAMETHOXAZOLE AND TRIMETHOPRIM [Suspect]
     Indication: RASH
     Dosage: 1 TAB BID PO
     Route: 048
     Dates: start: 20080723, end: 20080728
  2. SULFAMETHOXAZOLE AND TRIMETHOPRIM [Suspect]
     Indication: SUPERINFECTION
     Dosage: 1 TAB BID PO
     Route: 048
     Dates: start: 20080723, end: 20080728

REACTIONS (19)
  - ARTHRALGIA [None]
  - CHILLS [None]
  - DECREASED APPETITE [None]
  - DRUG ERUPTION [None]
  - ERYTHEMA INFECTIOSUM [None]
  - HEADACHE [None]
  - HYPERHIDROSIS [None]
  - HYPOTENSION [None]
  - MALAISE [None]
  - MENINGITIS ASEPTIC [None]
  - PAIN [None]
  - PERIVASCULAR DERMATITIS [None]
  - PETECHIAE [None]
  - PURPURA [None]
  - PYREXIA [None]
  - RASH MORBILLIFORM [None]
  - RASH PAPULAR [None]
  - VASCULITIS [None]
  - VIRAL SKIN INFECTION [None]
